FAERS Safety Report 24662760 (Version 1)
Quarter: 2024Q4

REPORT INFORMATION
  Report Type: Spontaneous
  Country: GB (occurrence: GB)
  Receive Date: 20241126
  Receipt Date: 20241126
  Transmission Date: 20250114
  Serious: No
  Sender: ALKEM
  Company Number: None

PATIENT
  Sex: Female

DRUGS (2)
  1. COLESEVELAM HYDROCHLORIDE [Suspect]
     Active Substance: COLESEVELAM HYDROCHLORIDE
     Indication: Product used for unknown indication
     Dosage: UNK
     Route: 065
  2. COLESEVELAM HYDROCHLORIDE [Suspect]
     Active Substance: COLESEVELAM HYDROCHLORIDE
     Dosage: 625 MILLIGRAM (FILM-COATED TABLET)
     Route: 065

REACTIONS (4)
  - Illness [Not Recovered/Not Resolved]
  - Dizziness [Not Recovered/Not Resolved]
  - Dyspepsia [Not Recovered/Not Resolved]
  - Headache [Not Recovered/Not Resolved]
